FAERS Safety Report 4433009-2 (Version None)
Quarter: 2004Q3

REPORT INFORMATION
  Report Type: 
  Country: None (occurrence: None)
  Receive Date: 20040721
  Receipt Date: 20040323
  Transmission Date: 20050211
  Serious: Yes (Hospitalization)
  Sender: FDA-Public Use
  Company Number: OMPQ-PR-0403S-0209(0)

PATIENT
  Age: 51 Year
  Sex: Male
  Weight: 106.5953 kg

DRUGS (1)
  1. OMNIPAQUE 180 [Suspect]
     Indication: CHEST PAIN
     Dosage: 110 ML, SINGLE DOSE, I.A.
     Route: 014
     Dates: start: 20040304, end: 30040304

REACTIONS (1)
  - HYPERSENSITIVITY [None]
